FAERS Safety Report 8556677-2 (Version None)
Quarter: 2012Q3

REPORT INFORMATION
  Report Type: 
  Country: None (occurrence: None)
  Receive Date: 20120726
  Receipt Date: 20120726
  Transmission Date: 20120928
  Serious: Yes (Other)
  Sender: FDA-Public Use
  Company Number: None

PATIENT
  Age: 45 Year
  Sex: Male

DRUGS (1)
  1. INVANZ [Suspect]
     Indication: POST PROCEDURAL INFECTION
     Dosage: 1G ONCE DAILY PO
     Route: 048
     Dates: start: 20120621, end: 20120627

REACTIONS (1)
  - CONVULSION [None]
